FAERS Safety Report 5878722-5 (Version None)
Quarter: 2008Q3

REPORT INFORMATION
  Report Type: 
  Country: None (occurrence: None)
  Receive Date: 20080912
  Receipt Date: 20070907
  Transmission Date: 20090109
  Serious: Yes (Other)
  Sender: FDA-Public Use
  Company Number: US-JNJFOC-20070901866

PATIENT
  Sex: Female
  Weight: 84.82 kg

DRUGS (18)
  1. LEVAQUIN [Suspect]
     Indication: PYELONEPHRITIS
     Route: 048
  2. LEVAQUIN [Suspect]
     Route: 042
  3. LEVAQUIN [Suspect]
     Route: 042
  4. MACROBID [Suspect]
     Route: 065
  5. MACROBID [Suspect]
     Route: 065
  6. MACROBID [Suspect]
     Indication: DRUG USE FOR UNKNOWN INDICATION
     Route: 065
  7. DIFLUCAN [Suspect]
     Route: 065
  8. DIFLUCAN [Suspect]
     Route: 065
  9. DIFLUCAN [Suspect]
     Route: 065
  10. DIFLUCAN [Suspect]
     Route: 065
  11. DIFLUCAN [Suspect]
     Indication: DRUG USE FOR UNKNOWN INDICATION
     Route: 065
  12. CLEOCIN [Suspect]
     Indication: DRUG USE FOR UNKNOWN INDICATION
     Route: 065
  13. AVELOX [Suspect]
     Indication: DRUG USE FOR UNKNOWN INDICATION
     Route: 065
  14. SECTREL [Suspect]
     Indication: DRUG USE FOR UNKNOWN INDICATION
     Route: 065
  15. CIPRO [Concomitant]
     Route: 065
  16. CIPRO [Concomitant]
     Indication: URINARY TRACT INFECTION
     Route: 065
  17. OMNICEF [Concomitant]
     Route: 065
  18. OMNICEF [Concomitant]
     Indication: DRUG USE FOR UNKNOWN INDICATION
     Route: 065

REACTIONS (4)
  - DRUG EXPOSURE DURING PREGNANCY [None]
  - GESTATIONAL DIABETES [None]
  - HYPERTENSION [None]
  - PREMATURE LABOUR [None]
